FAERS Safety Report 6058350-1 (Version None)
Quarter: 2009Q1

REPORT INFORMATION
  Report Type: 
  Country: None (occurrence: None)
  Receive Date: 20090130
  Receipt Date: 20090126
  Transmission Date: 20090719
  Serious: Yes (Hospitalization)
  Sender: FDA-Public Use
  Company Number: ES-BRISTOL-MYERS SQUIBB COMPANY-14484703

PATIENT
  Age: 84 Year
  Sex: Male

DRUGS (1)
  1. SPRYCEL [Suspect]
     Indication: CHRONIC MYELOID LEUKAEMIA
     Route: 048
     Dates: start: 20070505

REACTIONS (3)
  - GASTROINTESTINAL HAEMORRHAGE [None]
  - PLEURAL EFFUSION [None]
  - RESPIRATORY FAILURE [None]
